FAERS Safety Report 9352745 (Version 1)
Quarter: 2013Q2

REPORT INFORMATION
  Report Type: Spontaneous
  Country: BR (occurrence: BR)
  Receive Date: 20130618
  Receipt Date: 20130618
  Transmission Date: 20140414
  Serious: Yes (Hospitalization)
  Sender: FDA-Public Use
  Company Number: BR-ASTRAZENECA-2013SE15014

PATIENT
  Age: 50 Year
  Sex: Female
  Weight: 88.8 kg

DRUGS (7)
  1. NEXIUM [Suspect]
     Indication: GASTRITIS
     Route: 048
     Dates: start: 2011, end: 201302
  2. NEXIUM [Suspect]
     Indication: GASTRITIS
     Route: 048
  3. AMITRIPTILINA [Concomitant]
     Indication: BIPOLAR DISORDER
     Route: 048
  4. FLUOXETIN [Concomitant]
     Indication: BIPOLAR DISORDER
     Route: 048
  5. CARBOLITIUM [Concomitant]
     Indication: BIPOLAR DISORDER
     Route: 048
  6. RIVOTRIL [Concomitant]
     Indication: BIPOLAR DISORDER
     Route: 048
  7. FELDENE [Concomitant]
     Route: 048

REACTIONS (2)
  - Varicose vein [Recovered/Resolved]
  - Bursitis [Unknown]
